FAERS Safety Report 25690532 (Version 1)
Quarter: 2025Q3

REPORT INFORMATION
  Report Type: Spontaneous
  Country: EU (occurrence: EU)
  Receive Date: 20250818
  Receipt Date: 20250818
  Transmission Date: 20251020
  Serious: Yes (Other)
  Sender: TEVA
  Company Number: None

PATIENT
  Age: 69 Year
  Sex: Male
  Weight: 92 kg

DRUGS (1)
  1. LISINOPRIL [Suspect]
     Active Substance: LISINOPRIL
     Indication: Hypertension
     Dosage: 1 PIECE ONCE A DAY, BRAND NAME NOT SPECIFIED
     Route: 048
     Dates: start: 20160101, end: 20250801

REACTIONS (2)
  - Anogenital lichen planus [Not Recovered/Not Resolved]
  - Lichen planus [Not Recovered/Not Resolved]
